FAERS Safety Report 18181340 (Version 1)
Quarter: 2020Q3

REPORT INFORMATION
  Report Type: Spontaneous
  Country: US (occurrence: US)
  Receive Date: 20200821
  Receipt Date: 20200821
  Transmission Date: 20201103
  Serious: No
  Sender: FDA-Public Use
  Company Number: US-AMGEN-USASP2020134473

PATIENT
  Age: 60 Year
  Sex: Female

DRUGS (8)
  1. METOLAZONE. [Concomitant]
     Active Substance: METOLAZONE
  2. VIT D [Concomitant]
     Active Substance: VITAMIN D NOS
  3. COLESEVELAM [Concomitant]
     Active Substance: COLESEVELAM
  4. FOLIC ACID. [Concomitant]
     Active Substance: FOLIC ACID
  5. GLIMEPIRIDE. [Concomitant]
     Active Substance: GLIMEPIRIDE
  6. OTEZLA [Suspect]
     Active Substance: APREMILAST
     Indication: PSORIASIS
     Dosage: 30 MILLIGRAM, BID
     Route: 048
     Dates: start: 20200306
  7. DOK [Concomitant]
     Active Substance: DOCUSATE SODIUM
  8. FUROSEMIDE. [Concomitant]
     Active Substance: FUROSEMIDE

REACTIONS (1)
  - Psoriasis [Not Recovered/Not Resolved]

NARRATIVE: CASE EVENT DATE: 20200731
